FAERS Safety Report 6768076-4 (Version None)
Quarter: 2010Q2

REPORT INFORMATION
  Report Type: 
  Country: None (occurrence: None)
  Receive Date: 20100614
  Receipt Date: 20100607
  Transmission Date: 20101027
  Serious: Yes (Hospitalization)
  Sender: FDA-Public Use
  Company Number: AU-JNJFOC-20100602626

PATIENT
  Sex: Female

DRUGS (4)
  1. DURAGESIC-100 [Suspect]
     Indication: HEPATIC NEOPLASM MALIGNANT
     Dosage: 25 MCG/ HR AND 50 MCG/ HR
     Route: 062
  2. DURAGESIC-100 [Suspect]
     Indication: BONE NEOPLASM MALIGNANT
     Dosage: 25 MCG/ HR AND 50 MCG/ HR
     Route: 062
  3. NORSPAN [Concomitant]
     Route: 065
  4. ORDINE [Concomitant]
     Dosage: 2-4 ML/ 4 HOUR AS NEEDED
     Route: 065

REACTIONS (2)
  - FALL [None]
  - HIP FRACTURE [None]
